FAERS Safety Report 19875425 (Version 1)
Quarter: 2021Q3

REPORT INFORMATION
  Report Type: Spontaneous
  Country: CA (occurrence: CA)
  Receive Date: 20210924
  Receipt Date: 20210924
  Transmission Date: 20211014
  Serious: Yes (Other)
  Sender: FDA-Public Use
  Company Number: CA-AMGEN-CANSP2021147083

PATIENT
  Age: 60 Year
  Sex: Female

DRUGS (3)
  1. PREDNISONE. [Concomitant]
     Active Substance: PREDNISONE
     Dosage: 1 DF, DAILY (WEANED FROM 50MG TO 10MG DAILY)
     Route: 065
  2. METHOTREXATE. [Concomitant]
     Active Substance: METHOTREXATE
     Dosage: 1 DF UNKNOWN DOSE (MTX? STOPPED APPROXIMATELY 1 YEAR AGO)
     Route: 065
  3. ENBREL [Suspect]
     Active Substance: ETANERCEPT
     Indication: PRODUCT USED FOR UNKNOWN INDICATION
     Dosage: 1 DF, UNKNOWN DOSE
     Route: 065
     Dates: end: 202105

REACTIONS (5)
  - Renal pain [Unknown]
  - Hypersensitivity vasculitis [Unknown]
  - Blood urine present [Unknown]
  - Renal vasculitis [Unknown]
  - Skin lesion [Recovering/Resolving]
